FAERS Safety Report 4865645-3 (Version None)
Quarter: 2005Q4

REPORT INFORMATION
  Report Type: 
  Country: None (occurrence: None)
  Receive Date: 20051220
  Receipt Date: 20051205
  Transmission Date: 20060501
  Serious: Yes (Other)
  Sender: FDA-Public Use
  Company Number: 2005164347

PATIENT
  Age: 31 Year
  Sex: Male
  Weight: 58.9676 kg

DRUGS (5)
  1. CAVERJECT [Suspect]
     Indication: ERECTILE DYSFUNCTION
     Dosage: 10 MCG (20 MCG, AS NECESSARY)
     Dates: start: 20010101
  2. GABAPENTIN [Suspect]
     Indication: PAIN IN EXTREMITY
     Dosage: 600 MG (600 MG, AS NECESSARY), ORAL
     Route: 048
     Dates: start: 20051018, end: 20051201
  3. NORTRIPTYLINE (NORTRIPTYLINE) [Suspect]
     Indication: DEPRESSION
     Dosage: 1 IN 1 D
     Dates: start: 20051025, end: 20051203
  4. INTERFERON BETA-1A (INTERFERON BETA) [Suspect]
     Indication: MULTIPLE SCLEROSIS
     Dosage: INTRAMUSCULAR
     Route: 030
     Dates: start: 20020101
  5. ANTIDEPRESSANTS (ANTIDEPRESSANTS) [Suspect]

REACTIONS (7)
  - ANORGASMIA [None]
  - CONDITION AGGRAVATED [None]
  - DEPRESSION [None]
  - ERECTILE DYSFUNCTION [None]
  - INFLUENZA [None]
  - MIGRAINE [None]
  - MULTIPLE SCLEROSIS [None]
